FAERS Safety Report 9776551 (Version 4)
Quarter: 2025Q3

REPORT INFORMATION
  Report Type: Spontaneous
  Country: JP (occurrence: JP)
  Receive Date: 20131220
  Receipt Date: 20250903
  Transmission Date: 20251020
  Serious: Yes (Hospitalization, Other)
  Sender: BOEHRINGER INGELHEIM
  Company Number: JP-BOEHRINGER INGELHEIM GMBH, GERMANY-2013-BI-43236GD

PATIENT
  Age: 43 Year
  Sex: Male

DRUGS (1)
  1. MICARDIS [Suspect]
     Active Substance: TELMISARTAN
     Indication: Hypertension
     Dates: start: 20121009, end: 20121115

REACTIONS (5)
  - Enterocolitis [Recovered/Resolved]
  - Acute kidney injury [Unknown]
  - Face oedema [Unknown]
  - Gastrointestinal oedema [Unknown]
  - Angioedema [Unknown]

NARRATIVE: CASE EVENT DATE: 20121012
